FAERS Safety Report 9592357 (Version 1)
Quarter: 2013Q3

REPORT INFORMATION
  Report Type: Spontaneous
  Country: US (occurrence: None)
  Receive Date: 20130917
  Receipt Date: 20130917
  Transmission Date: 20140515
  Serious: No
  Sender: FDA-Public Use
  Company Number: AUR-APL-2013-01216

PATIENT
  Age: 27 Year
  Sex: Male
  Weight: 90.72 kg

DRUGS (2)
  1. PAROXETINE (PAROXETINE) [Suspect]
     Indication: DEPRESSION
     Dosage: 10MG (10MG, 1 IN 1D)
  2. PAROXETINE (PAROXETINE) [Suspect]
     Indication: ANXIETY
     Dosage: 10MG (10MG, 1 IN 1D)

REACTIONS (2)
  - Panic attack [None]
  - Anxiety [None]
